FAERS Safety Report 7207058-5 (Version None)
Quarter: 2011Q1

REPORT INFORMATION
  Report Type: 
  Country: None (occurrence: None)
  Receive Date: 20110103
  Receipt Date: 20101228
  Transmission Date: 20110831
  Serious: Yes (Hospitalization)
  Sender: FDA-Public Use
  Company Number: B0691159A

PATIENT
  Sex: Male

DRUGS (4)
  1. SOLUPRED [Suspect]
     Indication: BRONCHITIS
     Route: 048
     Dates: start: 20101206, end: 20101210
  2. AUGMENTIN [Suspect]
     Indication: BRONCHITIS
     Route: 048
     Dates: start: 20101206, end: 20101210
  3. PLAVIX [Concomitant]
     Indication: CARDIOVASCULAR EVENT PROPHYLAXIS
     Dosage: 75MG PER DAY
     Route: 048
     Dates: end: 20100916
  4. CLOPIDOGREL [Concomitant]
     Indication: CARDIOVASCULAR EVENT PROPHYLAXIS
     Dosage: 75MG PER DAY
     Route: 048
     Dates: start: 20100917

REACTIONS (5)
  - FAECES DISCOLOURED [None]
  - PRURITUS [None]
  - HEPATITIS ACUTE [None]
  - CHROMATURIA [None]
  - JAUNDICE [None]
